FAERS Safety Report 7081982-9 (Version None)
Quarter: 2010Q4

REPORT INFORMATION
  Report Type: 
  Country: None (occurrence: None)
  Receive Date: 20101103
  Receipt Date: 20101027
  Transmission Date: 20110411
  Serious: Yes (Other)
  Sender: FDA-Public Use
  Company Number: JP-PFIZER INC-2010132155

PATIENT
  Sex: Female

DRUGS (3)
  1. XALATAN [Suspect]
     Indication: GLAUCOMA
     Route: 047
  2. ARTANE [Suspect]
     Dosage: UNK
     Route: 048
     Dates: start: 19711201
  3. HYDANTOL [Concomitant]

REACTIONS (2)
  - ASTHENOPIA [None]
  - THIRST [None]
